FAERS Safety Report 4301353-5 (Version None)
Quarter: 2004Q1

REPORT INFORMATION
  Report Type: 
  Country: None (occurrence: None)
  Receive Date: 20040223
  Receipt Date: 20030430
  Transmission Date: 20041129
  Serious: No
  Sender: FDA-Public Use
  Company Number: US-GLAXOSMITHKLINE-A0406737A

PATIENT
  Sex: Male

DRUGS (4)
  1. NAVELBINE [Suspect]
     Indication: LUNG CANCER METASTATIC
     Dosage: 60MG SEE DOSAGE TEXT
     Route: 042
     Dates: start: 20030430, end: 20030430
  2. OXYCONTIN [Concomitant]
  3. TYLENOL W/ CODEINE NO. 3 [Concomitant]
     Route: 048
  4. PAXIL [Concomitant]
     Route: 048
     Dates: start: 20030101

REACTIONS (1)
  - ABDOMINAL PAIN [None]
